FAERS Safety Report 4423922-4 (Version None)
Quarter: 2004Q3

REPORT INFORMATION
  Report Type: 
  Country: None (occurrence: None)
  Receive Date: 20040805
  Receipt Date: 20040728
  Transmission Date: 20050211
  Serious: Yes (Hospitalization)
  Sender: FDA-Public Use
  Company Number: 2004225699CA

PATIENT
  Age: 33 Year
  Sex: Female
  Weight: 85.3 kg

DRUGS (1)
  1. DALTEPARIN SODIUM VS PLACEBO (DALTEPARIN SODIUM VS PLACEBO) SOLUTION, [Suspect]
     Indication: THROMBOSIS PROPHYLAXIS
     Dosage: 5000 IU, BID, SUBCUTANEOUS
     Route: 058
     Dates: start: 20031213

REACTIONS (6)
  - CIRCULATORY COLLAPSE [None]
  - COMA [None]
  - DISORIENTATION [None]
  - DRUG EXPOSURE DURING PREGNANCY [None]
  - HEADACHE [None]
  - SYNCOPE [None]
